FAERS Safety Report 5283054-2 (Version None)
Quarter: 2007Q1

REPORT INFORMATION
  Report Type: 
  Country: None (occurrence: None)
  Receive Date: 20070327
  Receipt Date: 20070316
  Transmission Date: 20070707
  Serious: Yes (Other)
  Sender: FDA-Public Use
  Company Number: 20070083 /

PATIENT
  Age: 85 Year
  Sex: Male

DRUGS (1)
  1. VENOFER [Suspect]
     Dosage: 100 MG X 1 INTRAVENOUS, 20 MG/ML
     Route: 042
     Dates: start: 20051101, end: 20051101

REACTIONS (1)
  - EPILEPSY [None]
